FAERS Safety Report 24099132 (Version 1)
Quarter: 2024Q3

REPORT INFORMATION
  Report Type: Spontaneous
  Country: US (occurrence: US)
  Receive Date: 20240716
  Receipt Date: 20240716
  Transmission Date: 20241017
  Serious: No
  Sender: NOVO NORDISK
  Company Number: US-NOVOPROD-1168728

PATIENT
  Age: 64 Year
  Sex: Female

DRUGS (1)
  1. OZEMPIC [Suspect]
     Active Substance: SEMAGLUTIDE
     Indication: Type 2 diabetes mellitus
     Dosage: WEEKLY
     Route: 058
     Dates: start: 202211

REACTIONS (7)
  - Ageusia [Unknown]
  - Weight decreased [Unknown]
  - Decreased appetite [Unknown]
  - Injection site bruising [Unknown]
  - Abdominal discomfort [Unknown]
  - Vomiting [Unknown]
  - Injection site discolouration [Unknown]
